FAERS Safety Report 4498304-X (Version None)
Quarter: 2004Q4

REPORT INFORMATION
  Report Type: 
  Country: None (occurrence: None)
  Receive Date: 20041109
  Receipt Date: 20041109
  Transmission Date: 20050328
  Serious: Yes (Hospitalization)
  Sender: FDA-Public Use
  Company Number: None

PATIENT
  Age: 73 Year
  Sex: Male
  Weight: 140.1615 kg

DRUGS (20)
  1. WARFARIN   10MG  BISTOL-MYERS SQUIBB [Suspect]
     Indication: AORTIC VALVE REPLACEMENT
     Dosage: 10MG  ONCE DAILY ORAL
     Route: 048
     Dates: start: 19960101, end: 20041108
  2. RABEPRAZOLE SODIUM [Concomitant]
  3. FEXOFENADINE HCL [Concomitant]
  4. AUGMENTIN '125' [Concomitant]
  5. GUAIFENESIN [Concomitant]
  6. SETRALINE [Concomitant]
  7. DIGOXIN [Concomitant]
  8. KCL TAB [Concomitant]
  9. TEMAZEPAM [Concomitant]
  10. OXYCODONE HCL [Concomitant]
  11. M.V.I. [Concomitant]
  12. SIMVASTATIN [Concomitant]
  13. ASPIRIN [Concomitant]
  14. FUROSEMIDE [Concomitant]
  15. DOCUSATE SODIUM [Concomitant]
  16. ISOSORBIDE DINITRATE [Concomitant]
  17. METOPROLOL SUCCINATE [Concomitant]
  18. VITAMIN E [Concomitant]
  19. ATROVENT [Concomitant]
  20. TRAZODONE HCL [Concomitant]

REACTIONS (1)
  - INTERNATIONAL NORMALISED RATIO INCREASED [None]
